FAERS Safety Report 12100546 (Version 1)
Quarter: 2016Q1

REPORT INFORMATION
  Report Type: Spontaneous
  Country: FR (occurrence: FR)
  Receive Date: 20160222
  Receipt Date: 20160222
  Transmission Date: 20160526
  Serious: Yes (Hospitalization)
  Sender: FDA-Public Use
  Company Number: FR-PFIZER INC-2016099925

PATIENT
  Age: 17 Year
  Sex: Male

DRUGS (25)
  1. PANTOPRAZOLE [Suspect]
     Active Substance: PANTOPRAZOLE SODIUM
     Dosage: 20 MG, UNK
  2. IFOSFAMIDE EG [Suspect]
     Active Substance: IFOSFAMIDE
     Dosage: 4640 MG, DAILY
     Route: 042
     Dates: start: 20150728, end: 20150729
  3. BACTRIM [Suspect]
     Active Substance: SULFAMETHOXAZOLE\TRIMETHOPRIM
     Dosage: 800 MG, ALTERNATE DAY ON MONDAYS, WEDNESDAYS, AND FRIDAYS
     Route: 048
  4. IFOSFAMIDE EG [Suspect]
     Active Substance: IFOSFAMIDE
     Dosage: 4480 MG, DAILY
     Route: 042
     Dates: start: 20150515, end: 20150518
  5. IFOSFAMIDE EG [Suspect]
     Active Substance: IFOSFAMIDE
     Dosage: 5960 MG, DAILY
     Route: 042
     Dates: start: 20151021, end: 20151022
  6. ETOPOSIDE TEVA [Suspect]
     Active Substance: ETOPOSIDE
     Dosage: 112 MG, DAILY
     Route: 042
     Dates: start: 20150515, end: 20150518
  7. TERCIAN /00759301/ [Suspect]
     Active Substance: CYAMEMAZINE
     Dosage: 15 GTT, 1X/DAY IN THE EVENING
     Route: 048
     Dates: start: 20151019
  8. METHYLPREDNISOLONE. [Suspect]
     Active Substance: METHYLPREDNISOLONE
     Dosage: 45 MG, 2X/DAY
     Route: 042
  9. IFOSFAMIDE EG [Suspect]
     Active Substance: IFOSFAMIDE
     Dosage: 4400 MG, DAILY
     Route: 042
     Dates: start: 20150613, end: 20150614
  10. IFOSFAMIDE EG [Suspect]
     Active Substance: IFOSFAMIDE
     Dosage: 4680 MG, DAILY
     Route: 042
     Dates: start: 20150818, end: 20150819
  11. IFOSFAMIDE EG [Suspect]
     Active Substance: IFOSFAMIDE
     Dosage: 6080 MG, DAILY
     Route: 042
     Dates: start: 20151110, end: 20151112
  12. ETOPOSIDE TEVA [Suspect]
     Active Substance: ETOPOSIDE
     Dosage: 148 MG, DAILY
     Route: 042
     Dates: start: 20151020, end: 20151022
  13. HYDROXYZINE HYDROCHLORIDE. [Suspect]
     Active Substance: HYDROXYZINE HYDROCHLORIDE
     Dosage: 45 MG, DAILY
     Route: 042
  14. IFOSFAMIDE EG [Suspect]
     Active Substance: IFOSFAMIDE
     Dosage: 5940 MG, DAILY
     Route: 042
     Dates: start: 20150820, end: 20150820
  15. IFOSFAMIDE EG [Suspect]
     Active Substance: IFOSFAMIDE
     Dosage: 4760 MG, DAILY
     Route: 042
     Dates: start: 20151228, end: 20151229
  16. ETOPOSIDE TEVA [Suspect]
     Active Substance: ETOPOSIDE
     Dosage: 120 MG, DAILY
     Route: 042
     Dates: start: 20151203, end: 20151205
  17. PANTOPRAZOLE [Suspect]
     Active Substance: PANTOPRAZOLE SODIUM
     Dosage: 20 MG, 2X/DAY
  18. IFOSFAMIDE EG [Suspect]
     Active Substance: IFOSFAMIDE
     Dosage: 4600 MG, DAILY
     Route: 042
     Dates: start: 20150706, end: 20150707
  19. IFOSFAMIDE EG [Suspect]
     Active Substance: IFOSFAMIDE
     Dosage: 4880 MG, DAILY
     Route: 042
     Dates: start: 20151203, end: 20151205
  20. LYRICA [Suspect]
     Active Substance: PREGABALIN
     Dosage: 50 MG, 2X/DAY
     Route: 048
     Dates: start: 20151010
  21. ETOPOSIDE TEVA [Suspect]
     Active Substance: ETOPOSIDE
     Dosage: 152 MG, DAILY
     Route: 042
     Dates: start: 20151110, end: 20151112
  22. ETOPOSIDE TEVA [Suspect]
     Active Substance: ETOPOSIDE
     Dosage: 120 MG, DAILY
     Route: 042
     Dates: start: 20151228, end: 20151230
  23. METHYLENE BLUE. [Suspect]
     Active Substance: METHYLENE BLUE
     Dosage: 50 MG, 4X/DAY
     Route: 042
  24. SPASFON /00765801/ [Suspect]
     Active Substance: PHLOROGLUCINOL\1,3,5-TRIMETHOXYBENZENE
     Dosage: 40 MG, 3X/DAY
     Route: 042
  25. ONDANSETRON [Suspect]
     Active Substance: ONDANSETRON
     Dosage: 8 MG, 2X/DAY
     Route: 042

REACTIONS (5)
  - Bacteraemia [Recovered/Resolved]
  - Febrile bone marrow aplasia [Recovered/Resolved]
  - Pancytopenia [Recovered/Resolved]
  - Acute kidney injury [Not Recovered/Not Resolved]
  - Renal tubular disorder [Not Recovered/Not Resolved]

NARRATIVE: CASE EVENT DATE: 20151119
